FAERS Safety Report 23285410 (Version 1)
Quarter: 2023Q4

REPORT INFORMATION
  Report Type: Spontaneous
  Country: US (occurrence: US)
  Receive Date: 20231211
  Receipt Date: 20231211
  Transmission Date: 20240110
  Serious: Yes (Other)
  Sender: FDA-Public Use
  Company Number: US-Covis Pharma GmbH-2023COV01900

PATIENT
  Sex: Female

DRUGS (1)
  1. RILUZOLE [Suspect]
     Active Substance: RILUZOLE
     Route: 048

REACTIONS (1)
  - Hospice care [Unknown]
